FAERS Safety Report 7320398-4 (Version None)
Quarter: 2011Q1

REPORT INFORMATION
  Report Type: 
  Country: None (occurrence: None)
  Receive Date: 20110228
  Receipt Date: 20110217
  Transmission Date: 20110831
  Serious: Yes (Hospitalization)
  Sender: FDA-Public Use
  Company Number: A0894995A

PATIENT
  Age: 69 Year
  Sex: Male

DRUGS (1)
  1. AVANDIA [Suspect]
     Dosage: 8MG PER DAY
     Route: 048
     Dates: start: 20060119, end: 20100513

REACTIONS (5)
  - CEREBROVASCULAR ACCIDENT [None]
  - DYSPNOEA [None]
  - CONVULSION [None]
  - DEPRESSION [None]
  - TREMOR [None]
